FAERS Safety Report 5449533-X (Version None)
Quarter: 2007Q3

REPORT INFORMATION
  Report Type: 
  Country: None (occurrence: None)
  Receive Date: 20070907
  Receipt Date: 20070828
  Transmission Date: 20080115
  Serious: Yes (Death)
  Sender: FDA-Public Use
  Company Number: 07-024

PATIENT
  Age: 50 Year
  Sex: Female
  Weight: 50.8029 kg

DRUGS (6)
  1. CEFAZOLIN [Suspect]
     Indication: PROPHYLAXIS
     Dosage: 1G, IV
     Route: 042
     Dates: start: 20070222, end: 20070502
  2. HEPARIN LOCK-FLUSH [Concomitant]
  3. ALBUTEROL [Concomitant]
  4. DIOVAN HCT [Concomitant]
  5. LORTAB [Concomitant]
  6. FOSAMAX+D [Concomitant]

REACTIONS (4)
  - INTRACRANIAL ANEURYSM [None]
  - POST PROCEDURAL INFECTION [None]
  - STAPHYLOCOCCAL INFECTION [None]
  - VEIN DISORDER [None]
